FAERS Safety Report 24833968 (Version 1)
Quarter: 2025Q1

REPORT INFORMATION
  Report Type: Spontaneous
  Country: US (occurrence: US)
  Receive Date: 20250112
  Receipt Date: 20250112
  Transmission Date: 20250408
  Serious: No
  Sender: JOHNSON AND JOHNSON
  Company Number: US-JNJFOC-20250133458

PATIENT
  Age: 75 Year
  Sex: Male

DRUGS (1)
  1. ERLEADA [Suspect]
     Active Substance: APALUTAMIDE
     Indication: Product used for unknown indication
     Dosage: END DATE ABOUT 2 MONTHS AGO BUT PATIENT IS NOT SURE
     Route: 048
     Dates: start: 20240814

REACTIONS (2)
  - Rash macular [Recovered/Resolved]
  - Pruritus [Recovered/Resolved]
